FAERS Safety Report 5518707-1 (Version None)
Quarter: 2007Q4

REPORT INFORMATION
  Report Type: 
  Country: None (occurrence: None)
  Receive Date: 20071115
  Receipt Date: 20071102
  Transmission Date: 20080405
  Serious: Yes (Hospitalization, Other)
  Sender: FDA-Public Use
  Company Number: US-ELI_LILLY_AND_COMPANY-US200711000512

PATIENT
  Sex: Female

DRUGS (3)
  1. FORTEO [Suspect]
     Indication: OSTEOPOROSIS
     Dosage: UNK, UNK
     Dates: start: 20060101, end: 20070915
  2. FORTEO [Suspect]
     Dates: start: 20071102
  3. CALCIUM [Concomitant]
     Dosage: UNK, DAILY (1/D)

REACTIONS (5)
  - CALCINOSIS [None]
  - GALLBLADDER DISORDER [None]
  - MUSCLE SPASMS [None]
  - PANCREATITIS [None]
  - VITAMIN D DECREASED [None]
